FAERS Safety Report 16901237 (Version 2)
Quarter: 2019Q4

REPORT INFORMATION
  Report Type: Spontaneous
  Country: DE (occurrence: DE)
  Receive Date: 20191009
  Receipt Date: 20191027
  Transmission Date: 20200122
  Serious: Yes (Death, Other)
  Sender: FDA-Public Use
  Company Number: DE-B.I. PHARMACEUTICALS,INC./RIDGEFIELD-2019-BI-106498

PATIENT
  Age: 58 Year
  Sex: Female

DRUGS (2)
  1. VARGATEF [Suspect]
     Active Substance: NINTEDANIB
     Indication: ADENOCARCINOMA
     Route: 048
     Dates: start: 201611, end: 201701
  2. DOCETAXEL. [Suspect]
     Active Substance: DOCETAXEL
     Indication: ADENOCARCINOMA
     Route: 042
     Dates: start: 201611, end: 201701

REACTIONS (3)
  - Epidermolysis [Unknown]
  - Skin disorder [Unknown]
  - Death [Fatal]

NARRATIVE: CASE EVENT DATE: 201703
